FAERS Safety Report 21446046 (Version 1)
Quarter: 2022Q4

REPORT INFORMATION
  Report Type: Spontaneous
  Country: US (occurrence: None)
  Receive Date: 20221011
  Receipt Date: 20221011
  Transmission Date: 20230112
  Serious: Yes (Other)
  Sender: FDA-Public Use
  Company Number: None

PATIENT
  Age: 38 Year
  Sex: Female

DRUGS (1)
  1. OCRELIZUMAB [Suspect]
     Active Substance: OCRELIZUMAB
     Indication: Multiple sclerosis
     Route: 042

REACTIONS (5)
  - Documented hypersensitivity to administered product [None]
  - Infusion related reaction [None]
  - Pruritus [None]
  - Dysphagia [None]
  - Tachycardia [None]

NARRATIVE: CASE EVENT DATE: 20221008
